FAERS Safety Report 6424824-4 (Version None)
Quarter: 2009Q4

REPORT INFORMATION
  Report Type: 
  Country: None (occurrence: None)
  Receive Date: 20091103
  Receipt Date: 20091028
  Transmission Date: 20100525
  Serious: Yes (Hospitalization, Disabling, Other)
  Sender: FDA-Public Use
  Company Number: PHEH2009US07289

PATIENT
  Sex: Female

DRUGS (8)
  1. EXJADE [Suspect]
     Indication: SICKLE CELL ANAEMIA
     Dosage: 1500 MG, QD
     Route: 048
     Dates: start: 20090214, end: 20090319
  2. EXJADE [Suspect]
     Indication: IRON OVERLOAD
     Dosage: TREATMENT ON HOLD
  3. SYNTHROID [Concomitant]
     Dosage: 0.88 MG, QD
     Route: 048
  4. PROTONIX [Concomitant]
     Dosage: 40 MG, QD
     Route: 048
  5. LISINOPRIL [Concomitant]
     Dosage: 10 MG, QD
     Route: 048
  6. DEPAKOTE [Concomitant]
     Dosage: 500 MG, QHS
     Route: 048
  7. ALLEGRA [Concomitant]
     Dosage: 1 TABLET, DAILY
     Route: 048
  8. FOLIC ACID [Concomitant]
     Dosage: 1 MG, QD
     Route: 048

REACTIONS (8)
  - BURNING SENSATION [None]
  - DECREASED APPETITE [None]
  - DYSPHAGIA [None]
  - GLOSSITIS [None]
  - GLOSSODYNIA [None]
  - MOUTH ULCERATION [None]
  - TONGUE ULCERATION [None]
  - WEIGHT DECREASED [None]
